FAERS Safety Report 18246055 (Version 2)
Quarter: 2020Q3

REPORT INFORMATION
  Report Type: Spontaneous
  Country: FR (occurrence: FR)
  Receive Date: 20200909
  Receipt Date: 20200917
  Transmission Date: 20201103
  Serious: Yes (Life-Threatening, Other)
  Sender: FDA-Public Use
  Company Number: FR-TEVA-2020-FR-1825159

PATIENT
  Age: 67 Year
  Sex: Female
  Weight: 82.5 kg

DRUGS (11)
  1. MIANSERINE ARROW [Suspect]
     Active Substance: MIANSERIN HYDROCHLORIDE
     Indication: PRODUCT USED FOR UNKNOWN INDICATION
     Dosage: 10 MILLIGRAM DAILY;
     Route: 048
     Dates: start: 20200822, end: 20200829
  2. OXYCODONE LP [Concomitant]
     Indication: PAIN
     Dosage: 20 MILLIGRAM DAILY;
     Route: 048
     Dates: start: 20200824
  3. CEFOTAXIME [Concomitant]
     Active Substance: CEFOTAXIME SODIUM
     Indication: SEPSIS
     Dosage: 1.5 MILLIGRAM DAILY;
     Route: 042
     Dates: start: 20200817, end: 20200820
  4. ENGERIX?B [Concomitant]
     Active Substance: HEPATITIS B VIRUS SUBTYPE ADW2 HBSAG SURFACE PROTEIN ANTIGEN
     Dosage: TWO DOSES; 20 MCG
     Dates: start: 20200827
  5. PANTOPRAZOLE [Concomitant]
     Active Substance: PANTOPRAZOLE
     Indication: NAUSEA
     Dosage: 20 MILLIGRAM DAILY;
     Route: 048
     Dates: start: 20200821, end: 20200828
  6. PREGABALINE TEVA SANTE 25 MG [Suspect]
     Active Substance: PREGABALIN
     Indication: PAIN
     Dosage: 25 MILLIGRAM DAILY; ONE CAPSULE IN THE EVENING AT 06:00 P.M.
     Route: 048
     Dates: start: 20200827, end: 20200828
  7. IMIPENEM /CILASTATINE KABI [Suspect]
     Active Substance: CILASTATIN SODIUM\IMIPENEM
     Indication: SEPSIS
     Dosage: 1 MILLIGRAM DAILY; 500 MG/500 MG
     Route: 042
     Dates: start: 20200813, end: 20200817
  8. PRIMPERAN [Concomitant]
     Active Substance: METOCLOPRAMIDE HYDROCHLORIDE
     Indication: NAUSEA
     Dosage: 30 MILLIGRAM DAILY;
     Route: 048
     Dates: start: 20200821, end: 20200828
  9. CALCIPARINE [Concomitant]
     Active Substance: HEPARIN CALCIUM
     Indication: ANAEMIA
     Route: 058
     Dates: start: 202008
  10. LEVOTHYROX [Concomitant]
     Active Substance: LEVOTHYROXINE
     Indication: HYPOTHYROIDISM
     Dosage: 112.5 MICROGRAM DAILY; STARTED BEFORE 2020
     Route: 048
  11. ARANESP [Concomitant]
     Active Substance: DARBEPOETIN ALFA
     Indication: ANAEMIA
     Route: 058

REACTIONS (1)
  - Agranulocytosis [Recovered/Resolved]

NARRATIVE: CASE EVENT DATE: 20200827
